FAERS Safety Report 14283169 (Version 3)
Quarter: 2018Q2

REPORT INFORMATION
  Report Type: Spontaneous
  Country: US (occurrence: US)
  Receive Date: 20171213
  Receipt Date: 20180604
  Transmission Date: 20180711
  Serious: Yes (Death, Hospitalization)
  Sender: FDA-Public Use
  Company Number: US-ACTELION-A-US2017-163883

PATIENT
  Age: 57 Year
  Sex: Female

DRUGS (1)
  1. TRACLEER [Suspect]
     Active Substance: BOSENTAN
     Indication: PULMONARY ARTERIAL HYPERTENSION
     Dosage: 125 MG, BID
     Route: 048
     Dates: start: 201307

REACTIONS (7)
  - Dyspnoea [Fatal]
  - Respiratory failure [Fatal]
  - Condition aggravated [Recovering/Resolving]
  - Interstitial lung disease [Fatal]
  - Peripheral swelling [Recovering/Resolving]
  - Pulmonary congestion [Fatal]
  - Fatigue [Fatal]

NARRATIVE: CASE EVENT DATE: 20171115
